FAERS Safety Report 5272611-5 (Version None)
Quarter: 2007Q1

REPORT INFORMATION
  Report Type: 
  Country: None (occurrence: None)
  Receive Date: 20070320
  Receipt Date: 20070320
  Transmission Date: 20070707
  Serious: Yes (Life-Threatening, Other)
  Sender: FDA-Public Use
  Company Number: None

PATIENT
  Age: 53 Year
  Sex: Male
  Weight: 95.2554 kg

DRUGS (1)
  1. LUNESTA [Suspect]
     Indication: INSOMNIA
     Dosage: 3MG 1 @ HS IF NEEDED PO
     Route: 048

REACTIONS (8)
  - ABNORMAL SLEEP-RELATED EVENT [None]
  - AMNESIA [None]
  - BACK INJURY [None]
  - LOSS OF CONSCIOUSNESS [None]
  - NECK INJURY [None]
  - POST CONCUSSION SYNDROME [None]
  - ROAD TRAFFIC ACCIDENT [None]
  - SOMNOLENCE [None]
